FAERS Safety Report 21554333 (Version 1)
Quarter: 2022Q4

REPORT INFORMATION
  Report Type: Spontaneous
  Country: IE (occurrence: IE)
  Receive Date: 20221104
  Receipt Date: 20221104
  Transmission Date: 20230112
  Serious: Yes (Other)
  Sender: FDA-Public Use
  Company Number: IE-AMNEAL PHARMACEUTICALS-2022-AMRX-03186

PATIENT
  Age: 28 Year
  Sex: Male

DRUGS (1)
  1. TESTOSTERONE [Suspect]
     Active Substance: TESTOSTERONE
     Indication: Primary hypogonadism
     Route: 065

REACTIONS (1)
  - Central serous chorioretinopathy [Recovered/Resolved]
